FAERS Safety Report 7394328-3 (Version None)
Quarter: 2011Q2

REPORT INFORMATION
  Report Type: 
  Country: None (occurrence: None)
  Receive Date: 20110405
  Receipt Date: 20071227
  Transmission Date: 20111010
  Serious: Yes (Hospitalization)
  Sender: FDA-Public Use
  Company Number: ES-BRISTOL-MYERS SQUIBB COMPANY-14045843

PATIENT
  Age: 71 Year
  Sex: Male

DRUGS (7)
  1. EZETIMIBE [Concomitant]
     Indication: ACUTE MYOCARDIAL INFARCTION
     Route: 048
     Dates: start: 20060701
  2. LIPEMOL TABS [Suspect]
     Indication: ACUTE MYOCARDIAL INFARCTION
     Route: 048
     Dates: start: 20060101
  3. PLAVIX [Interacting]
     Indication: ACUTE MYOCARDIAL INFARCTION
     Dosage: DOSE FORM=TABLET
     Route: 048
     Dates: start: 20060101
  4. BISOPROLOL FUMARATE [Concomitant]
     Indication: ACUTE MYOCARDIAL INFARCTION
     Route: 048
     Dates: start: 20060101
  5. IXIA [Concomitant]
     Indication: ACUTE MYOCARDIAL INFARCTION
     Route: 048
     Dates: start: 20060601
  6. TROMALYT [Interacting]
     Indication: ACUTE MYOCARDIAL INFARCTION
     Dosage: DOSE FORM=CAPSULE
     Route: 048
     Dates: start: 20060101
  7. OMEPRAZOLE [Concomitant]
     Route: 048
     Dates: start: 20060301

REACTIONS (3)
  - GASTRIC ULCER HAEMORRHAGE [None]
  - DRUG INTERACTION [None]
  - GASTROINTESTINAL HAEMORRHAGE [None]
